FAERS Safety Report 18629187 (Version 1)
Quarter: 2020Q4

REPORT INFORMATION
  Report Type: Spontaneous
  Country: US (occurrence: US)
  Receive Date: 20201217
  Receipt Date: 20201217
  Transmission Date: 20210114
  Serious: Yes (Hospitalization)
  Sender: FDA-Public Use
  Company Number: None

PATIENT
  Age: 64 Year
  Sex: Male
  Weight: 118 kg

DRUGS (1)
  1. BAMLANIVIMAB. [Suspect]
     Active Substance: BAMLANIVIMAB
     Indication: SARS-COV-2 TEST POSITIVE
     Dosage: ?          OTHER FREQUENCY:ONCE;?
     Route: 041

REACTIONS (7)
  - Lung infiltration [None]
  - Blood creatinine increased [None]
  - Pyrexia [None]
  - Hyperhidrosis [None]
  - Oxygen saturation decreased [None]
  - Tremor [None]
  - Hypoxia [None]

NARRATIVE: CASE EVENT DATE: 20201216
